FAERS Safety Report 5951523-5 (Version None)
Quarter: 2008Q4

REPORT INFORMATION
  Report Type: 
  Country: None (occurrence: None)
  Receive Date: 20081113
  Receipt Date: 20071116
  Transmission Date: 20090506
  Serious: Yes (Death, Hospitalization)
  Sender: FDA-Public Use
  Company Number: US-ASTRAZENECA-2007UW06082

PATIENT
  Age: 19002 Day
  Sex: Female
  Weight: 108 kg

DRUGS (42)
  1. SEROQUEL [Suspect]
     Indication: DEPRESSION
     Route: 048
     Dates: start: 20010101, end: 20050122
  2. FLOVENT [Concomitant]
  3. KEFLEX [Concomitant]
  4. AMBIEN [Concomitant]
  5. PLAVIX [Concomitant]
  6. TOPROL-XL [Concomitant]
     Route: 048
  7. XANAX [Concomitant]
  8. ZYRTEC [Concomitant]
  9. DEMEROL [Concomitant]
  10. PHENERGAN HCL [Concomitant]
  11. ACCUPRIL [Concomitant]
  12. ALBUTEROL [Concomitant]
  13. GLUCOVANCE [Concomitant]
  14. ACTOS [Concomitant]
  15. DARVOCET [Concomitant]
  16. TRANXENE [Concomitant]
  17. LASIX [Concomitant]
  18. TYLENOL W/ CODEINE NO. 3 [Concomitant]
  19. PROZAC [Concomitant]
  20. SPIRIVA [Concomitant]
  21. RESTORIL [Concomitant]
  22. AVELOX [Concomitant]
  23. DECADRON [Concomitant]
  24. LAMISIL [Concomitant]
  25. ALEVE [Concomitant]
  26. CIPRO [Concomitant]
  27. LEVAQUIN [Concomitant]
  28. HYDROXYZINE PAMOATE [Concomitant]
  29. LACTULOSE [Concomitant]
  30. PEG 3350 [Concomitant]
  31. HYDROCODONE BITARTRATE + ACETAMINOPHEN [Concomitant]
  32. HYDROCHLOROTHIAZIDE [Concomitant]
  33. NABUMETONE [Concomitant]
  34. METHOCARBAMOL [Concomitant]
  35. ADVAIR DISKUS 100/50 [Concomitant]
  36. DOXYCYCLINE [Concomitant]
  37. PREDNISONE TAB [Concomitant]
  38. LIPITOR [Concomitant]
  39. NOVOLIN [Concomitant]
  40. DIOVAN [Concomitant]
  41. ENABLEX [Concomitant]
  42. BIAXIN [Concomitant]

REACTIONS (4)
  - CHRONIC OBSTRUCTIVE PULMONARY DISEASE [None]
  - DEATH [None]
  - PNEUMONIA [None]
  - TYPE 2 DIABETES MELLITUS [None]
